FAERS Safety Report 18768523 (Version 1)
Quarter: 2021Q1

REPORT INFORMATION
  Report Type: Spontaneous
  Country: US (occurrence: US)
  Receive Date: 20210121
  Receipt Date: 20210121
  Transmission Date: 20210419
  Serious: Yes (Hospitalization)
  Sender: FDA-Public Use
  Company Number: None

PATIENT
  Sex: Male

DRUGS (6)
  1. AMBRISENTAN [Concomitant]
     Active Substance: AMBRISENTAN
  2. AMBRISENTAN [Suspect]
     Active Substance: AMBRISENTAN
     Indication: CHRONIC OBSTRUCTIVE PULMONARY DISEASE
     Route: 048
  3. EZETIMIBE. [Concomitant]
     Active Substance: EZETIMIBE
  4. ROSUVASTATIN. [Concomitant]
     Active Substance: ROSUVASTATIN
  5. NIFEDIPINE. [Concomitant]
     Active Substance: NIFEDIPINE
  6. OFEV [Concomitant]
     Active Substance: NINTEDANIB

REACTIONS (1)
  - Hospitalisation [None]
